FAERS Safety Report 17204621 (Version 2)
Quarter: 2021Q1

REPORT INFORMATION
  Report Type: Spontaneous
  Country: US (occurrence: US)
  Receive Date: 20191226
  Receipt Date: 20210302
  Transmission Date: 20210419
  Serious: Yes (Other)
  Sender: FDA-Public Use
  Company Number: US-ASTRAZENECA-2019SF85886

PATIENT
  Age: 67 Year
  Sex: Female
  Weight: 70.3 kg

DRUGS (39)
  1. AMOXICILLIN. [Concomitant]
     Active Substance: AMOXICILLIN
     Indication: ANTIBIOTIC THERAPY
  2. CEFALEXIN [Concomitant]
     Active Substance: CEPHALEXIN
     Indication: ANTIBIOTIC THERAPY
  3. TRIAMTERENE. [Concomitant]
     Active Substance: TRIAMTERENE
     Indication: BLOOD PRESSURE MEASUREMENT
     Dates: start: 1995, end: 2020
  4. VITAMIN B12 [Concomitant]
     Active Substance: CYANOCOBALAMIN
     Dates: start: 2017
  5. ACETAMINOPHEN. [Concomitant]
     Active Substance: ACETAMINOPHEN
  6. LEVOTHYROXINE. [Concomitant]
     Active Substance: LEVOTHYROXINE
  7. AMPICILLIN [Concomitant]
     Active Substance: AMPICILLIN
     Indication: ANTIBIOTIC THERAPY
  8. VITAMINS [Concomitant]
     Active Substance: VITAMINS
     Dates: start: 2017
  9. CALCIUM [Concomitant]
     Active Substance: CALCIUM
     Dates: start: 2017
  10. LISINOPRIL. [Concomitant]
     Active Substance: LISINOPRIL
  11. PROTONIX [Suspect]
     Active Substance: PANTOPRAZOLE SODIUM
     Indication: GASTROOESOPHAGEAL REFLUX DISEASE
     Dosage: GENERIC
     Route: 065
     Dates: end: 2019
  12. HYDROCHLOROTHIAZIDE. [Concomitant]
     Active Substance: HYDROCHLOROTHIAZIDE
     Dates: start: 2020
  13. NEOMYCIN. [Concomitant]
     Active Substance: NEOMYCIN
  14. POLYETHYLENE GLYCOL [Concomitant]
     Active Substance: POLYETHYLENE GLYCOLS
  15. PRILOSEC OTC [Suspect]
     Active Substance: OMEPRAZOLE MAGNESIUM
     Indication: GASTROOESOPHAGEAL REFLUX DISEASE
     Route: 048
     Dates: start: 201301, end: 201812
  16. HEPARIN [Concomitant]
     Active Substance: HEPARIN SODIUM
  17. PENICILLIN [Concomitant]
     Active Substance: PENICILLIN
     Indication: ANTIBIOTIC THERAPY
  18. POTASSIUM CHLORIDE. [Concomitant]
     Active Substance: POTASSIUM CHLORIDE
     Indication: HYPOKALAEMIA
     Dates: start: 2020
  19. VITAMIN D3 [Concomitant]
     Active Substance: CHOLECALCIFEROL
     Dates: start: 2017
  20. PRILOSEC OTC [Suspect]
     Active Substance: OMEPRAZOLE MAGNESIUM
     Indication: GASTROOESOPHAGEAL REFLUX DISEASE
     Route: 048
     Dates: start: 2013, end: 2018
  21. ERYTHROMYCIN. [Concomitant]
     Active Substance: ERYTHROMYCIN
     Indication: ANTIBIOTIC THERAPY
  22. LIPITOR [Concomitant]
     Active Substance: ATORVASTATIN CALCIUM
     Indication: HYPERTENSION
     Dates: start: 2010, end: 2020
  23. ASPIRIN. [Concomitant]
     Active Substance: ASPIRIN
     Dates: start: 2013
  24. RANITIDINE. [Concomitant]
     Active Substance: RANITIDINE
     Dates: start: 2011
  25. CIPRO [Concomitant]
     Active Substance: CIPROFLOXACIN HYDROCHLORIDE
  26. TOPIRAMATE. [Concomitant]
     Active Substance: TOPIRAMATE
  27. INDOMETHACIN. [Concomitant]
     Active Substance: INDOMETHACIN
  28. DIAZEPAM. [Concomitant]
     Active Substance: DIAZEPAM
  29. PROTONIX [Suspect]
     Active Substance: PANTOPRAZOLE SODIUM
     Indication: GASTROOESOPHAGEAL REFLUX DISEASE
     Route: 065
     Dates: start: 201301, end: 201812
  30. PROTONIX [Suspect]
     Active Substance: PANTOPRAZOLE SODIUM
     Indication: GASTROOESOPHAGEAL REFLUX DISEASE
     Route: 065
     Dates: start: 2015
  31. FELODIPINE. [Concomitant]
     Active Substance: FELODIPINE
  32. SIMVASTATIN. [Concomitant]
     Active Substance: SIMVASTATIN
  33. GABAPENTIN. [Concomitant]
     Active Substance: GABAPENTIN
  34. OMEPRAZOLE. [Suspect]
     Active Substance: OMEPRAZOLE
     Indication: GASTROOESOPHAGEAL REFLUX DISEASE
     Route: 065
     Dates: start: 2014
  35. LISINOPRIL. [Concomitant]
     Active Substance: LISINOPRIL
     Indication: BLOOD PRESSURE MEASUREMENT
     Dates: start: 1995, end: 2017
  36. CEFPROZIL. [Concomitant]
     Active Substance: CEFPROZIL
     Indication: ANTIBIOTIC THERAPY
  37. CODEIN [Concomitant]
     Active Substance: CODEINE
  38. PREMARIN [Concomitant]
     Active Substance: ESTROGENS, CONJUGATED
  39. TRAMADOL. [Concomitant]
     Active Substance: TRAMADOL

REACTIONS (2)
  - Chronic kidney disease [Not Recovered/Not Resolved]
  - Gastrooesophageal reflux disease [Not Recovered/Not Resolved]

NARRATIVE: CASE EVENT DATE: 2017
